FAERS Safety Report 19306169 (Version 2)
Quarter: 2021Q4

REPORT INFORMATION
  Report Type: Other
  Country: US (occurrence: US)
  Receive Date: 20210526
  Receipt Date: 20211014
  Transmission Date: 20220304
  Serious: Yes (Hospitalization)
  Sender: FDA-Public Use
  Company Number: US-DEXPHARM-20210712

PATIENT
  Age: 84 Year
  Sex: Female

DRUGS (4)
  1. OMEPRAZOLE [Interacting]
     Active Substance: OMEPRAZOLE
  2. ALENDRONATE [Interacting]
     Active Substance: ALENDRONATE SODIUM
     Indication: Osteoporosis
  3. VIMPAT [Concomitant]
     Active Substance: LACOSAMIDE
  4. KEPPRA [Concomitant]
     Active Substance: LEVETIRACETAM

REACTIONS (2)
  - Hypomagnesaemia [Recovered/Resolved]
  - Drug interaction [Recovered/Resolved]
